FAERS Safety Report 10718102 (Version 1)
Quarter: 2015Q1

REPORT INFORMATION
  Report Type: Spontaneous
  Country: GB (occurrence: GB)
  Receive Date: 20150117
  Receipt Date: 20150117
  Transmission Date: 20150721
  Serious: Yes (Other)
  Sender: FDA-Public Use
  Company Number: GB-009507513-1501GBR005443

PATIENT
  Age: 83 Year
  Sex: Male
  Weight: 42.47 kg

DRUGS (7)
  1. CLOPIDOGREL [Concomitant]
     Active Substance: CLOPIDOGREL BISULFATE
     Dates: start: 20140908, end: 20141223
  2. ASPIRIN. [Concomitant]
     Active Substance: ASPIRIN
     Dates: start: 20140908, end: 20141223
  3. ZETIA [Suspect]
     Active Substance: EZETIMIBE
     Dates: start: 20140908
  4. BETAMETHASONE VALERATE. [Concomitant]
     Active Substance: BETAMETHASONE VALERATE
     Dates: start: 20141028, end: 20141104
  5. NAPROXEN. [Concomitant]
     Active Substance: NAPROXEN
     Dates: start: 20141011, end: 20141108
  6. FINASTERIDE. [Concomitant]
     Active Substance: FINASTERIDE
     Dates: start: 20140908, end: 20141223
  7. ZOPICLONE [Concomitant]
     Active Substance: ZOPICLONE
     Dates: start: 20141029, end: 20141126

REACTIONS (1)
  - Neuropathy peripheral [Unknown]

NARRATIVE: CASE EVENT DATE: 20150107
